FAERS Safety Report 16064043 (Version 3)
Quarter: 2019Q2

REPORT INFORMATION
  Report Type: Spontaneous
  Country: US (occurrence: US)
  Receive Date: 20190312
  Receipt Date: 20190430
  Transmission Date: 20190711
  Serious: Yes (Other)
  Sender: FDA-Public Use
  Company Number: US-ASTRAZENECA-2019SE11817

PATIENT
  Age: 19303 Day
  Sex: Female

DRUGS (26)
  1. BUSPAR [Concomitant]
     Active Substance: BUSPIRONE HYDROCHLORIDE
  2. EXCEDRIN [Concomitant]
     Active Substance: ACETAMINOPHEN\ASPIRIN\CAFFEINE
     Indication: HEADACHE
  3. PRILOSEC [Suspect]
     Active Substance: OMEPRAZOLE MAGNESIUM
     Route: 048
     Dates: start: 19890914, end: 20181204
  4. LITHIUM. [Concomitant]
     Active Substance: LITHIUM
  5. LISINOPRIL. [Concomitant]
     Active Substance: LISINOPRIL
  6. LOSARTAN. [Concomitant]
     Active Substance: LOSARTAN
  7. LUVOX [Concomitant]
     Active Substance: FLUVOXAMINE MALEATE
  8. PRILOSEC [Suspect]
     Active Substance: OMEPRAZOLE MAGNESIUM
     Route: 048
  9. CLONIDINE. [Concomitant]
     Active Substance: CLONIDINE
  10. CITALOPRAM [Concomitant]
     Active Substance: CITALOPRAM HYDROBROMIDE
  11. FENOFIBRATE. [Concomitant]
     Active Substance: FENOFIBRATE
  12. WELLBUTRIN [Concomitant]
     Active Substance: BUPROPION HYDROCHLORIDE
  13. RANITIDINE. [Concomitant]
     Active Substance: RANITIDINE
  14. SEROQUEL [Concomitant]
     Active Substance: QUETIAPINE FUMARATE
  15. ABILIFY [Concomitant]
     Active Substance: ARIPIPRAZOLE
  16. XANAX [Concomitant]
     Active Substance: ALPRAZOLAM
  17. TUMS [Concomitant]
     Active Substance: CALCIUM CARBONATE
     Indication: DYSPEPSIA
  18. ZANTAC 105 [Concomitant]
  19. KEFLEX [Concomitant]
     Active Substance: CEPHALEXIN
  20. FUROSEMIDE. [Concomitant]
     Active Substance: FUROSEMIDE
  21. LEVOTHYROXINE. [Concomitant]
     Active Substance: LEVOTHYROXINE
  22. PEPCID [Concomitant]
     Active Substance: FAMOTIDINE
  23. NEXIUM [Suspect]
     Active Substance: ESOMEPRAZOLE MAGNESIUM
     Indication: GASTROOESOPHAGEAL REFLUX DISEASE
     Route: 048
  24. PRILOSEC [Suspect]
     Active Substance: OMEPRAZOLE MAGNESIUM
     Dosage: GENERIC-40MG DAILY
     Route: 065
  25. VISTARIL [Concomitant]
     Active Substance: HYDROXYZINE PAMOATE
  26. LIPITOR [Concomitant]
     Active Substance: ATORVASTATIN CALCIUM

REACTIONS (2)
  - Renal injury [Unknown]
  - Chronic kidney disease [Not Recovered/Not Resolved]

NARRATIVE: CASE EVENT DATE: 20181205
